FAERS Safety Report 4474305-2 (Version None)
Quarter: 2004Q4

REPORT INFORMATION
  Report Type: 
  Country: None (occurrence: None)
  Receive Date: 20041012
  Receipt Date: 20041012
  Transmission Date: 20050328
  Serious: Yes (Other)
  Sender: FDA-Public Use
  Company Number: None

PATIENT
  Age: 61 Year
  Sex: Male
  Weight: 105.2345 kg

DRUGS (4)
  1. SEROQUEL [Suspect]
     Indication: BIPOLAR DISORDER
     Dosage: SEE IMAGE
     Dates: start: 20040924
  2. SEROQUEL [Suspect]
     Indication: SEASONAL AFFECTIVE DISORDER
     Dosage: SEE IMAGE
     Dates: start: 20040924
  3. TEGRETOL [Concomitant]
  4. VITAMIN C [Concomitant]

REACTIONS (3)
  - HUNGER [None]
  - HYPOGLYCAEMIA [None]
  - INCREASED APPETITE [None]
